FAERS Safety Report 9540745 (Version 1)
Quarter: 2013Q3

REPORT INFORMATION
  Report Type: Spontaneous
  Country: US (occurrence: US)
  Receive Date: 20130920
  Receipt Date: 20130920
  Transmission Date: 20140515
  Serious: No
  Sender: FDA-Public Use
  Company Number: US-TEVA-433896USA

PATIENT
  Age: 40 Year
  Sex: Female
  Weight: 75.36 kg

DRUGS (5)
  1. PLAN B ONE-STEP [Suspect]
     Indication: POST COITAL CONTRACEPTION
     Dosage: 1.5 MILLIGRAM DAILY;
     Route: 048
     Dates: start: 20130913, end: 20130913
  2. METFORMIN [Concomitant]
     Indication: GLUCOSE TOLERANCE IMPAIRED
  3. ALBUTEROL [Concomitant]
     Indication: ASTHMA
  4. PRILOSEC [Concomitant]
     Indication: GASTROOESOPHAGEAL REFLUX DISEASE
  5. PRO-AIR INHALER [Concomitant]
     Indication: ASTHMA

REACTIONS (3)
  - Muscle spasms [Not Recovered/Not Resolved]
  - Menstruation irregular [Not Recovered/Not Resolved]
  - Dysmenorrhoea [Not Recovered/Not Resolved]
